FAERS Safety Report 20174965 (Version 4)
Quarter: 2022Q1

REPORT INFORMATION
  Report Type: Spontaneous
  Country: US (occurrence: US)
  Receive Date: 20211213
  Receipt Date: 20220307
  Transmission Date: 20220423
  Serious: No
  Sender: FDA-Public Use
  Company Number: US-AMGEN-USASP2021195449

PATIENT
  Age: 56 Year
  Sex: Female

DRUGS (3)
  1. OTEZLA [Suspect]
     Active Substance: APREMILAST
     Indication: Psoriasis
     Dosage: 30 MILLIGRAM, BID
     Route: 048
     Dates: start: 20200728
  2. OTEZLA [Suspect]
     Active Substance: APREMILAST
     Indication: Psoriatic arthropathy
  3. TRULICITY [Concomitant]
     Active Substance: DULAGLUTIDE
     Dosage: UNK (0.75/0.5)

REACTIONS (3)
  - Periarthritis [Not Recovered/Not Resolved]
  - Illness [Not Recovered/Not Resolved]
  - Product dose omission issue [Unknown]

NARRATIVE: CASE EVENT DATE: 20210101
